FAERS Safety Report 25259737 (Version 2)
Quarter: 2025Q2

REPORT INFORMATION
  Report Type: Spontaneous
  Country: US (occurrence: US)
  Receive Date: 20250501
  Receipt Date: 20250507
  Transmission Date: 20250716
  Serious: Yes (Other)
  Sender: PFIZER
  Company Number: US-PFIZER INC-202500090130

PATIENT
  Age: 37 Year
  Sex: Female

DRUGS (1)
  1. HYDROCORTISONE ACETATE [Suspect]
     Active Substance: HYDROCORTISONE ACETATE
     Route: 042

REACTIONS (2)
  - Arrhythmia [Unknown]
  - Drug hypersensitivity [Unknown]
